FAERS Safety Report 4851643-2 (Version None)
Quarter: 2005Q4

REPORT INFORMATION
  Report Type: 
  Country: None (occurrence: None)
  Receive Date: 20051212
  Receipt Date: 20051107
  Transmission Date: 20060501
  Serious: Yes (Hospitalization)
  Sender: FDA-Public Use
  Company Number: US-MERCK-0511USA01472

PATIENT
  Age: 71 Year
  Sex: Male

DRUGS (7)
  1. VIOXX [Suspect]
     Indication: ANKYLOSING SPONDYLITIS
     Route: 048
     Dates: start: 20000101
  2. ASPIRIN [Concomitant]
     Route: 065
  3. ATENOLOL [Concomitant]
     Route: 065
  4. NITROGLYCERIN [Concomitant]
     Route: 065
  5. ALLOPURINOL [Concomitant]
     Route: 065
  6. ECOTRIN [Concomitant]
     Route: 065
  7. CASANTHRANOL AND DOCUSATE SODIUM [Concomitant]
     Route: 065

REACTIONS (10)
  - ANGINA PECTORIS [None]
  - CORONARY ARTERY DISEASE [None]
  - ELECTROCARDIOGRAM ST SEGMENT DEPRESSION [None]
  - EXERCISE TEST ABNORMAL [None]
  - HEART RATE INCREASED [None]
  - MYOCARDIAL ISCHAEMIA [None]
  - OVERDOSE [None]
  - PALPITATIONS [None]
  - POSTOPERATIVE THORACIC PROCEDURE COMPLICATION [None]
  - VENTRICULAR HYPOKINESIA [None]
